FAERS Safety Report 9646759 (Version 1)
Quarter: 2013Q4

REPORT INFORMATION
  Report Type: Spontaneous
  Country: US (occurrence: US)
  Receive Date: 20131027
  Receipt Date: 20131027
  Transmission Date: 20140711
  Serious: Yes (Other)
  Sender: FDA-Public Use
  Company Number: US-NAPPMUNDI-USA-2013-0101142

PATIENT
  Age: 16 Year
  Sex: Female

DRUGS (1)
  1. OXYCONTIN TABLETS [Suspect]
     Indication: DRUG ABUSE
     Route: 048

REACTIONS (5)
  - Drug abuse [Unknown]
  - Drug dependence [Unknown]
  - Malaise [Unknown]
  - Vomiting [Unknown]
  - Exposure during pregnancy [Unknown]
